FAERS Safety Report 7703268-9 (Version None)
Quarter: 2011Q3

REPORT INFORMATION
  Report Type: 
  Country: None (occurrence: None)
  Receive Date: 20110817
  Receipt Date: 20110801
  Transmission Date: 20111222
  Serious: Yes (Death, Hospitalization)
  Sender: FDA-Public Use
  Company Number: WAES 0905NLD00005

PATIENT
  Age: 51 Year
  Sex: Male

DRUGS (10)
  1. CAP VORINOSTAT [Suspect]
     Indication: MESOTHELIOMA
     Dosage: 300 MG/BID
     Route: 048
     Dates: start: 20090417
  2. FENTANYL [Concomitant]
  3. METOCLOPRAMIDE [Concomitant]
  4. PANTOPRAZOLE [Concomitant]
  5. AMITRIPTYLINE HYDROCHLORIDE [Concomitant]
  6. OXYCODONE HCL [Concomitant]
  7. MG OXIDE [Concomitant]
  8. SENNA-MINT WAF [Concomitant]
  9. HALOPERIDOL [Concomitant]
  10. TEMAZEPAM [Concomitant]

REACTIONS (3)
  - ABDOMINAL PAIN [None]
  - PLEURAL MESOTHELIOMA MALIGNANT ADVANCED [None]
  - CONSTIPATION [None]
